FAERS Safety Report 23212892 (Version 3)
Quarter: 2023Q4

REPORT INFORMATION
  Report Type: Report from Study
  Country: US (occurrence: US)
  Receive Date: 20231121
  Receipt Date: 20231128
  Transmission Date: 20240109
  Serious: No
  Sender: FDA-Public Use
  Company Number: US-002147023-NVSC2023US246097

PATIENT
  Sex: Male

DRUGS (1)
  1. ENTRESTO [Suspect]
     Active Substance: SACUBITRIL\VALSARTAN
     Indication: Product used for unknown indication
     Dosage: 24/26 MG, BID
     Route: 065
     Dates: start: 202309

REACTIONS (8)
  - COVID-19 [Recovering/Resolving]
  - Abdominal pain [Unknown]
  - Cough [Unknown]
  - Decreased appetite [Unknown]
  - Balance disorder [Unknown]
  - Muscular weakness [Unknown]
  - Vision blurred [Unknown]
  - Anxiety [Unknown]
